FAERS Safety Report 9378184 (Version 3)
Quarter: 2013Q3

REPORT INFORMATION
  Report Type: Spontaneous
  Country: JP (occurrence: JP)
  Receive Date: 20130701
  Receipt Date: 20130829
  Transmission Date: 20140515
  Serious: Yes (Other)
  Sender: FDA-Public Use
  Company Number: JP-GLAXOSMITHKLINE-B0903975A

PATIENT
  Age: 76 Year
  Sex: Female

DRUGS (11)
  1. LAMICTAL [Suspect]
     Indication: AFFECTIVE DISORDER
     Dosage: 25MG ALTERNATE DAYS
     Route: 048
     Dates: start: 20130524, end: 20130602
  2. LAMICTAL [Suspect]
     Indication: AFFECTIVE DISORDER
     Dosage: 25MG PER DAY
     Route: 048
     Dates: start: 20130603, end: 20130616
  3. LAMICTAL [Suspect]
     Indication: AFFECTIVE DISORDER
     Dosage: 50MG PER DAY
     Route: 048
     Dates: start: 20130617, end: 20130619
  4. AMLODIPINE [Concomitant]
     Indication: HYPERTENSION
     Route: 048
  5. MINIPRESS [Concomitant]
     Indication: HYPERTENSION
     Route: 048
  6. MEMARY [Concomitant]
     Indication: HYPERTENSION
     Dosage: 20MG PER DAY
     Route: 048
  7. RIVASTIGMINE HYDROGEN TARTRATE [Concomitant]
     Indication: HYPERTENSION
     Dosage: 4.5MG PER DAY
     Route: 062
  8. BUP-4 [Concomitant]
     Indication: URINARY TRACT DISORDER
     Route: 048
  9. ZOLPIDEM TARTRATE [Concomitant]
     Indication: URINARY TRACT DISORDER
     Dosage: 5MG PER DAY
     Route: 048
  10. DEPAKENE-R [Concomitant]
     Dosage: 200MG TWICE PER DAY
     Route: 048
  11. QUETIAPINE [Concomitant]
     Dosage: 25MG PER DAY
     Route: 048

REACTIONS (6)
  - Skin disorder [Recovering/Resolving]
  - Mouth ulceration [Unknown]
  - Pyrexia [Unknown]
  - Pneumonia aspiration [Recovered/Resolved]
  - Chromaturia [Unknown]
  - Rash [Unknown]
